FAERS Safety Report 6853554-X (Version None)
Quarter: 2010Q3

REPORT INFORMATION
  Report Type: 
  Country: None (occurrence: None)
  Receive Date: 20100717
  Receipt Date: 20071210
  Transmission Date: 20110219
  Serious: No
  Sender: FDA-Public Use
  Company Number: US-PFIZER INC-2007106052

PATIENT
  Sex: Female

DRUGS (3)
  1. CHANTIX [Suspect]
     Indication: SMOKING CESSATION THERAPY
     Dates: start: 20071027, end: 20071207
  2. ZOLOFT [Concomitant]
     Indication: GENERALISED ANXIETY DISORDER
  3. KLONOPIN [Concomitant]
     Indication: GENERALISED ANXIETY DISORDER

REACTIONS (5)
  - ANXIETY [None]
  - HEADACHE [None]
  - MOOD SWINGS [None]
  - MUSCLE SPASMS [None]
  - NERVOUSNESS [None]
